FAERS Safety Report 7116151-7 (Version None)
Quarter: 2010Q4

REPORT INFORMATION
  Report Type: 
  Country: None (occurrence: None)
  Receive Date: 20101122
  Receipt Date: 20101109
  Transmission Date: 20110411
  Serious: Yes (Other)
  Sender: FDA-Public Use
  Company Number: US-AMGEN-USASP2010004843

PATIENT

DRUGS (16)
  1. PROCRIT [Suspect]
     Indication: ANAEMIA
     Dosage: UNK
  2. ASPIRIN [Concomitant]
     Dosage: UNK
     Dates: end: 20101008
  3. SIMVASTATIN [Concomitant]
     Dosage: 10 MG, UNK
  4. VITAMIN A [Concomitant]
     Dosage: 4000 IU, QD
  5. OXCARBAZEPINE [Concomitant]
     Dosage: 300 MG, BID
  6. OXCARBAZEPINE [Concomitant]
     Dosage: 150 MG, BID
  7. ZOLOFT [Concomitant]
     Dosage: 75 MG, QD
  8. ARICEPT                            /01318901/ [Concomitant]
     Dosage: 10 MG, QD
  9. CALCIUM [Concomitant]
     Dosage: UNK UNK, BID
  10. CLONAZEPAM [Concomitant]
     Dosage: 0.5 UNK, UNK
  11. DIOVAN [Concomitant]
     Dosage: 160 MG, QD
  12. FERROUS GLUCONATE [Concomitant]
     Dosage: 324 MG, BID
  13. FOLIC ACID [Concomitant]
     Dosage: 400 A?G, QD
  14. NAMENDA [Concomitant]
  15. DOCUSATE [Concomitant]
  16. VICODIN [Concomitant]
     Dosage: UNK UNK, PRN

REACTIONS (2)
  - APLASIA PURE RED CELL [None]
  - RENAL DISORDER [None]
